FAERS Safety Report 12860913 (Version 1)
Quarter: 2016Q4

REPORT INFORMATION
  Report Type: Spontaneous
  Country: DE (occurrence: DE)
  Receive Date: 20161019
  Receipt Date: 20161019
  Transmission Date: 20170207
  Serious: Yes (Other)
  Sender: FDA-Public Use
  Company Number: DE-ABBVIE-16K-062-1756685-00

PATIENT
  Age: 34 Year
  Sex: Female

DRUGS (3)
  1. PREDNISOLON [Suspect]
     Active Substance: PREDNISOLONE
     Indication: PRODUCT USED FOR UNKNOWN INDICATION
     Route: 065
  2. METEX [Concomitant]
     Active Substance: METFORMIN HYDROCHLORIDE
     Indication: PRODUCT USED FOR UNKNOWN INDICATION
  3. HUMIRA [Suspect]
     Active Substance: ADALIMUMAB
     Indication: RHEUMATIC DISORDER
     Route: 058
     Dates: start: 201504, end: 201609

REACTIONS (5)
  - Eye inflammation [Recovering/Resolving]
  - Accident [Recovering/Resolving]
  - Eye swelling [Recovering/Resolving]
  - Ocular hyperaemia [Recovering/Resolving]
  - Keratorhexis [Recovering/Resolving]
